FAERS Safety Report 17839117 (Version 2)
Quarter: 2020Q3

REPORT INFORMATION
  Report Type: Report from Study
  Country: US (occurrence: US)
  Receive Date: 20200529
  Receipt Date: 20200918
  Transmission Date: 20201103
  Serious: Yes (Other)
  Sender: FDA-Public Use
  Company Number: US-BIOGEN-2020BI00879152

PATIENT
  Age: 26 Year
  Sex: Female

DRUGS (3)
  1. TECFIDERA [Suspect]
     Active Substance: DIMETHYL FUMARATE
     Dosage: STARTING DOSE
     Route: 048
     Dates: start: 202002, end: 202002
  2. TECFIDERA [Suspect]
     Active Substance: DIMETHYL FUMARATE
     Indication: MULTIPLE SCLEROSIS
     Route: 048
     Dates: start: 20200128
  3. TECFIDERA [Suspect]
     Active Substance: DIMETHYL FUMARATE
     Dosage: MAINTENANCE DOSE
     Route: 048
     Dates: start: 202002

REACTIONS (7)
  - Blindness transient [Recovered/Resolved]
  - Micturition urgency [Unknown]
  - Ataxia [Unknown]
  - Diplopia [Recovered/Resolved]
  - Dizziness [Recovered/Resolved]
  - Urinary hesitation [Unknown]
  - Lhermitte^s sign [Unknown]

NARRATIVE: CASE EVENT DATE: 202004
